FAERS Safety Report 5428700-5 (Version None)
Quarter: 2007Q3

REPORT INFORMATION
  Report Type: 
  Country: None (occurrence: None)
  Receive Date: 20070828
  Receipt Date: 20070815
  Transmission Date: 20080115
  Serious: Yes (Hospitalization)
  Sender: FDA-Public Use
  Company Number: US-SHR-US-2007-025742

PATIENT
  Age: 44 Year
  Sex: Female

DRUGS (3)
  1. BETAFERON [Suspect]
     Indication: RELAPSING-REMITTING MULTIPLE SCLEROSIS
     Dosage: UNK, EVERY 2D
     Route: 058
     Dates: start: 20050411, end: 20070707
  2. TYLENOL (CAPLET) [Concomitant]
     Indication: HEADACHE
     Dosage: 650 MG, AS REQ'D
     Route: 048
  3. TYLENOL EXTRA-STRENGTH [Concomitant]
     Dosage: 1000 MG, EVERY 2D PRN
     Route: 048
     Dates: start: 20050411

REACTIONS (3)
  - CERVIX CARCINOMA [None]
  - RENAL FAILURE ACUTE [None]
  - UTERINE OBSTRUCTION [None]
